FAERS Safety Report 8710209 (Version 3)
Quarter: 2012Q4

REPORT INFORMATION
  Report Type: 
  Country: DE (occurrence: DE)
  Receive Date: 20120807
  Receipt Date: 20120904
  Transmission Date: 20130627
  Serious: Yes (Hospitalization)
  Sender: FDA-Public Use
  Company Number: DE-AMGEN-DEUSP2012048631

PATIENT

DRUGS (8)
  1. NEULASTA [Suspect]
     Indication: CHEMOTHERAPY
     Dosage: UNK
  2. ADRIAMYCIN                         /00330901/ [Concomitant]
     Dosage: 35 mg/m2, UNK
     Dates: start: 20120721
  3. BLEOMYCIN [Concomitant]
     Dosage: 10 mg/m2, UNK
     Dates: start: 20120721
  4. PROCARBAZINE [Concomitant]
     Dosage: 100 mg/m2, UNK
     Dates: start: 20120721
  5. VINCRISTIN [Concomitant]
     Dosage: 1.4 mg/m2, UNK
     Dates: start: 20120721
  6. ETOPOSID [Concomitant]
     Dosage: 200 mg/m2, UNK
     Dates: start: 20120721
  7. CYCLOPHOSPHAMID [Concomitant]
     Dosage: 1250 mg/m2, UNK
     Dates: start: 20120721
  8. PREDNISON [Concomitant]
     Dosage: 40 mg/m2, UNK
     Dates: start: 20120721

REACTIONS (1)
  - Pain [Recovered/Resolved]
